FAERS Safety Report 21472560 (Version 1)
Quarter: 2022Q4

REPORT INFORMATION
  Report Type: Spontaneous
  Country: US (occurrence: US)
  Receive Date: 20221018
  Receipt Date: 20221018
  Transmission Date: 20230113
  Serious: No
  Sender: FDA-Public Use
  Company Number: US-BRISTOL-MYERS SQUIBB COMPANY-2022-121099

PATIENT
  Age: 80 Year
  Sex: Female

DRUGS (2)
  1. REVLIMID [Suspect]
     Active Substance: LENALIDOMIDE
     Indication: Plasma cell myeloma
     Dosage: FREQ: TAKE 1 CAPSULE BY MOUTH EVERY DAY FOR 21 DAYS FOLLOWED BY 7 DAYS OFF THEN REPEAT
     Route: 048
  2. NICKEL [Concomitant]
     Active Substance: NICKEL
     Indication: Product used for unknown indication
     Route: 065

REACTIONS (3)
  - Joint swelling [Unknown]
  - Weight decreased [Unknown]
  - Infection [Unknown]
